FAERS Safety Report 21732672 (Version 1)
Quarter: 2022Q4

REPORT INFORMATION
  Report Type: Spontaneous
  Country: PL (occurrence: PL)
  Receive Date: 20221215
  Receipt Date: 20221215
  Transmission Date: 20230113
  Serious: Yes (Other)
  Sender: FDA-Public Use
  Company Number: None

PATIENT
  Age: 85 Year
  Sex: Male

DRUGS (14)
  1. ATORVASTATIN [Suspect]
     Active Substance: ATORVASTATIN
     Indication: Product used for unknown indication
     Dosage: AT A DOSE 20 MG
  2. BISOPROLOL [Suspect]
     Active Substance: BISOPROLOL
     Indication: Product used for unknown indication
     Dosage: 1.25 MG, QD
  3. CLOPIDOGREL [Suspect]
     Active Substance: CLOPIDOGREL BISULFATE
     Indication: Acute myocardial infarction
     Dosage: AT A DOSE 75 MG
  4. EPLERENONE [Suspect]
     Active Substance: EPLERENONE
     Indication: Acute myocardial infarction
     Dosage: AT A DOSE OF 25 MG
  5. PANTOPRAZOLE [Suspect]
     Active Substance: PANTOPRAZOLE
     Indication: Acute myocardial infarction
     Dosage: AT A DOSE OF 20 MG
  6. AMIODARONE [Suspect]
     Active Substance: AMIODARONE
     Indication: Arrhythmia
     Dosage: 200 MG
  7. LEVOTHYROXINE [Suspect]
     Active Substance: LEVOTHYROXINE
     Indication: Hypothyroidism
     Dosage: 25 MCG, UNK
  8. ACENOCOUMAROL [Suspect]
     Active Substance: ACENOCOUMAROL
     Indication: Product used for unknown indication
  9. ASPIRIN [Suspect]
     Active Substance: ASPIRIN
     Indication: Acute myocardial infarction
     Dosage: AT A DOSE OF 150 MG
  10. TYROSINE [Suspect]
     Active Substance: TYROSINE
     Indication: Product used for unknown indication
     Dosage: 37.5 UG, PER DAY
  11. LEVOTHYROXINE [Suspect]
     Active Substance: LEVOTHYROXINE
     Dosage: 50 MCG
  12. AMIODARONE [Suspect]
     Active Substance: AMIODARONE
     Indication: Product used for unknown indication
     Dosage: 100 MG
  13. BISOPROLOL [Suspect]
     Active Substance: BISOPROLOL
     Indication: Acute myocardial infarction
     Dosage: 2.5 MG
  14. AMIODARONE [Suspect]
     Active Substance: AMIODARONE
     Indication: Arrhythmia
     Dosage: 50 MG, QD

REACTIONS (11)
  - Heart rate increased [Unknown]
  - Thyroid disorder [Unknown]
  - Ventricular tachycardia [Unknown]
  - Atrial tachycardia [Unknown]
  - Atrial flutter [Unknown]
  - Blood thyroid stimulating hormone increased [Unknown]
  - Electrocardiogram QT prolonged [Recovered/Resolved]
  - Drug ineffective [Unknown]
  - Supraventricular tachycardia [Unknown]
  - Electrocardiogram PR prolongation [Unknown]
  - Arrhythmia [Unknown]
